FAERS Safety Report 22841726 (Version 2)
Quarter: 2025Q4

REPORT INFORMATION
  Report Type: Spontaneous
  Country: CA (occurrence: CA)
  Receive Date: 20230821
  Receipt Date: 20251112
  Transmission Date: 20260117
  Serious: Yes (Other)
  Sender: TAKEDA
  Company Number: CA-TAKEDA-2023TUS079370

PATIENT
  Age: 66 Year
  Sex: Male
  Weight: 97.6 kg

DRUGS (8)
  1. HUMAN IMMUNOGLOBULIN G [Interacting]
     Active Substance: HUMAN IMMUNOGLOBULIN G
     Indication: Product used for unknown indication
     Dosage: 1 DOSAGE FORM
  2. RUXIENCE [Interacting]
     Active Substance: RITUXIMAB-PVVR
     Indication: Granulomatosis with polyangiitis
     Dosage: 500 MILLIGRAM, Q6MONTHS
     Dates: start: 20210825
  3. RUXIENCE [Interacting]
     Active Substance: RITUXIMAB-PVVR
     Dosage: 500 MILLIGRAM, QD
  4. RUXIENCE [Interacting]
     Active Substance: RITUXIMAB-PVVR
     Dosage: 500 MILLIGRAM, Q6MONTHS
     Dates: start: 20220324
  5. RUXIENCE [Interacting]
     Active Substance: RITUXIMAB-PVVR
     Dosage: 500 MILLIGRAM, Q6MONTHS
     Dates: start: 20221007
  6. RUXIENCE [Interacting]
     Active Substance: RITUXIMAB-PVVR
     Dosage: 500 MILLIGRAM, Q6MONTHS
     Dates: start: 20230424
  7. RUXIENCE [Interacting]
     Active Substance: RITUXIMAB-PVVR
     Indication: Granulomatosis with polyangiitis
     Dosage: 500 MILLIGRAM
  8. IRON [Concomitant]
     Active Substance: IRON
     Indication: Product used for unknown indication
     Dosage: UNK

REACTIONS (6)
  - Foot fracture [Recovering/Resolving]
  - Off label use [Unknown]
  - Intentional product use issue [Unknown]
  - Weight decreased [Unknown]
  - Drug interaction [Not Recovered/Not Resolved]
  - Drug hypersensitivity [Unknown]

NARRATIVE: CASE EVENT DATE: 20220324
